FAERS Safety Report 7407976-9 (Version None)
Quarter: 2011Q2

REPORT INFORMATION
  Report Type: 
  Country: None (occurrence: None)
  Receive Date: 20110412
  Receipt Date: 20110406
  Transmission Date: 20111010
  Serious: No
  Sender: FDA-Public Use
  Company Number: US-PFIZER INC-2011076881

PATIENT
  Age: 80 Year
  Sex: Female

DRUGS (2)
  1. PLAVIX [Interacting]
  2. PROTONIX [Suspect]

REACTIONS (1)
  - DRUG INTERACTION [None]
